FAERS Safety Report 10622963 (Version 1)
Quarter: 2014Q4

REPORT INFORMATION
  Report Type: Spontaneous
  Country: AR (occurrence: AR)
  Receive Date: 20141203
  Receipt Date: 20141203
  Transmission Date: 20150529
  Serious: Yes (Death, Congenital Anomaly, Other)
  Sender: FDA-Public Use
  Company Number: PHHY2014AR154877

PATIENT
  Weight: 2.18 kg

DRUGS (3)
  1. MYCOPHENOLATE MOFETIL. [Suspect]
     Active Substance: MYCOPHENOLATE MOFETIL
     Route: 064
  2. METHYLPREDNISOLONE. [Suspect]
     Active Substance: METHYLPREDNISOLONE
     Route: 064
  3. ENOXAPARIN [Suspect]
     Active Substance: ENOXAPARIN
     Route: 064

REACTIONS (14)
  - Cleft lip and palate [Unknown]
  - Microtia [Unknown]
  - Atrioventricular septal defect [Unknown]
  - Premature baby [Unknown]
  - Low birth weight baby [Unknown]
  - Death [Fatal]
  - Patent ductus arteriosus [Unknown]
  - Foetal exposure during pregnancy [Unknown]
  - Retrognathia [Unknown]
  - Oesophageal atresia [Unknown]
  - Cardiomyopathy neonatal [Unknown]
  - Hemivertebra [Unknown]
  - Coloboma [Unknown]
  - Microphthalmos [Unknown]
